FAERS Safety Report 24116854 (Version 2)
Quarter: 2024Q3

REPORT INFORMATION
  Report Type: Spontaneous
  Country: CN (occurrence: CN)
  Receive Date: 20240722
  Receipt Date: 20240729
  Transmission Date: 20241016
  Serious: Yes (Death)
  Sender: ROCHE
  Company Number: CN-BoehringerIngelheim-2024-BI-040426

PATIENT
  Age: 88 Year
  Sex: Female
  Weight: 55.0 kg

DRUGS (3)
  1. ALTEPLASE [Suspect]
     Active Substance: ALTEPLASE
     Indication: Thrombolysis
     Dosage: 50 MILLIGRAM (STANDARD DOSE 0.9 MILLIGRAM PER KILLOGRAM), (TOTAL DOSE 10 PERCENT) INTRAVENOUS BOLUS
     Route: 042
     Dates: start: 20240611, end: 20240611
  2. ALTEPLASE [Suspect]
     Active Substance: ALTEPLASE
     Dosage: 50 MILLIGRAM (STANDARD DOSE 0.9 MILLIGRAM PER KILLOGRAM); THE REMAINING 45 MILLIGRAM (TOTAL DOSE 90
     Route: 042
     Dates: start: 20240611, end: 20240611
  3. SODIUM CHLORIDE [Concomitant]
     Active Substance: SODIUM CHLORIDE
     Route: 042
     Dates: start: 20240611, end: 20240611

REACTIONS (4)
  - Cerebral haemorrhage [Fatal]
  - Brain herniation [Fatal]
  - Hydrocephalus [Unknown]
  - Off label use [Unknown]

NARRATIVE: CASE EVENT DATE: 20240612
